FAERS Safety Report 20091233 (Version 2)
Quarter: 2022Q1

REPORT INFORMATION
  Report Type: Spontaneous
  Country: GB (occurrence: GB)
  Receive Date: 20211119
  Receipt Date: 20220112
  Transmission Date: 20220423
  Serious: Yes (Hospitalization)
  Sender: FDA-Public Use
  Company Number: GB-NOVARTISPH-NVSC2021GB251608

PATIENT

DRUGS (1)
  1. KYMRIAH [Suspect]
     Active Substance: TISAGENLECLEUCEL
     Indication: Product used for unknown indication
     Dosage: UNK, ONCE/SINGLE
     Route: 041
     Dates: start: 20210819

REACTIONS (5)
  - Immune effector cell-associated neurotoxicity syndrome [Unknown]
  - Pyrexia [Not Recovered/Not Resolved]
  - Cytokine release syndrome [Unknown]
  - Hypotension [Unknown]
  - Aphasia [Unknown]
